FAERS Safety Report 7020447-7 (Version None)
Quarter: 2010Q3

REPORT INFORMATION
  Report Type: 
  Country: None (occurrence: None)
  Receive Date: 20100929
  Receipt Date: 20100920
  Transmission Date: 20110219
  Serious: Yes (Hospitalization)
  Sender: FDA-Public Use
  Company Number: US-ASTRAZENECA-2010SE44148

PATIENT
  Age: 61 Year
  Sex: Male

DRUGS (10)
  1. MARCAINE [Suspect]
     Indication: ANAESTHESIA
     Route: 037
     Dates: start: 20100817, end: 20100817
  2. XYLOCAINE [Suspect]
     Indication: ANAESTHESIA
     Route: 058
     Dates: start: 20100817, end: 20100817
  3. CELECOXIB [Suspect]
     Indication: PROCEDURAL PAIN
     Dosage: 600 MG (FIRST DOSE 400 MG , SECOND DOSE 200 MG)
     Route: 048
     Dates: start: 20100817, end: 20100818
  4. CEFAZOLIN SODIUM [Suspect]
     Indication: POSTOPERATIVE WOUND INFECTION
     Route: 042
     Dates: start: 20100817, end: 20100817
  5. HEPARIN CALCIUM [Suspect]
     Indication: THROMBOSIS PROPHYLAXIS
     Route: 058
     Dates: start: 20100817, end: 20100817
  6. ATROPINE [Suspect]
     Indication: BRADYCARDIA
     Route: 042
     Dates: start: 20100817, end: 20100817
  7. NORMAL SALINE [Concomitant]
     Dates: start: 20100817, end: 20100817
  8. RINGER'S AND DEXTROSE INJECTION [Concomitant]
     Dates: start: 20100817, end: 20100817
  9. SOLITA T [Concomitant]
     Dates: start: 20100817, end: 20100817
  10. ETODOLAC [Suspect]

REACTIONS (1)
  - PYREXIA [None]
